FAERS Safety Report 9720532 (Version 1)
Quarter: 2013Q4

REPORT INFORMATION
  Report Type: Spontaneous
  Country: AU (occurrence: AU)
  Receive Date: 20131129
  Receipt Date: 20131129
  Transmission Date: 20140711
  Serious: Yes (Death)
  Sender: FDA-Public Use
  Company Number: AU-ASTRAZENECA-2013SE86628

PATIENT
  Age: 34 Year
  Sex: Male

DRUGS (5)
  1. SEROQUEL [Suspect]
     Route: 048
  2. DIAZEPAM [Suspect]
  3. MIRTAZAPINE [Suspect]
  4. MORPHINE SULPHATE [Suspect]
  5. XANAX [Suspect]

REACTIONS (3)
  - Overdose [Fatal]
  - Adverse drug reaction [Fatal]
  - Drug dependence [Fatal]
